FAERS Safety Report 7145161-9 (Version None)
Quarter: 2010Q4

REPORT INFORMATION
  Report Type: 
  Country: None (occurrence: None)
  Receive Date: 20101124
  Receipt Date: 20101115
  Transmission Date: 20110411
  Serious: Yes (Disabling)
  Sender: FDA-Public Use
  Company Number: 2010EU005999

PATIENT
  Age: 8 Year
  Sex: Female
  Weight: 24 kg

DRUGS (2)
  1. VESICARE [Suspect]
     Indication: BLADDER DISORDER
     Dosage: (5 MG, UID/QD) (7.5 MG, UID/QD)
  2. BOTOX [Concomitant]

REACTIONS (2)
  - EDUCATIONAL PROBLEM [None]
  - VISUAL IMPAIRMENT [None]
